FAERS Safety Report 25973998 (Version 1)
Quarter: 2025Q4

REPORT INFORMATION
  Report Type: Report from Study
  Country: EU (occurrence: EU)
  Receive Date: 20251029
  Receipt Date: 20251029
  Transmission Date: 20260117
  Serious: Yes (Other)
  Sender: MYLAN
  Company Number: EU-SA-2025SA032992

PATIENT
  Age: 76 Year
  Sex: Female
  Weight: 57.5 kg

DRUGS (35)
  1. DEXAMETHASONE [Suspect]
     Active Substance: DEXAMETHASONE
     Indication: Plasma cell myeloma refractory
     Dosage: 20 MILLIGRAM, QW
     Dates: start: 20240605, end: 20240612
  2. DEXAMETHASONE [Suspect]
     Active Substance: DEXAMETHASONE
     Dosage: 20 MILLIGRAM, QW
     Dates: start: 20240626, end: 20240626
  3. DEXAMETHASONE [Suspect]
     Active Substance: DEXAMETHASONE
     Dosage: 20 MILLIGRAM, QW
     Dates: start: 20240703, end: 20240724
  4. DEXAMETHASONE [Suspect]
     Active Substance: DEXAMETHASONE
     Dosage: 20 MILLIGRAM, QW
     Dates: start: 20240802, end: 20240823
  5. DEXAMETHASONE [Suspect]
     Active Substance: DEXAMETHASONE
     Dosage: 10 MILLIGRAM, BIWEEKLY
     Dates: start: 20240830, end: 20240920
  6. DEXAMETHASONE [Suspect]
     Active Substance: DEXAMETHASONE
     Dosage: 10 MILLIGRAM, BIWEEKLY
     Dates: start: 20240927, end: 20241004
  7. DEXAMETHASONE [Suspect]
     Active Substance: DEXAMETHASONE
     Dosage: 10 MILLIGRAM, BIWEEKLY
     Dates: start: 20241025, end: 20241115
  8. DEXAMETHASONE [Suspect]
     Active Substance: DEXAMETHASONE
     Dosage: 10 MILLIGRAM, BIWEEKLY
     Dates: start: 20241129, end: 20241220
  9. DEXAMETHASONE [Suspect]
     Active Substance: DEXAMETHASONE
     Dosage: 10 MILLIGRAM, BIWEEKLY
     Dates: start: 20241227, end: 20250117
  10. POMALIDOMIDE [Suspect]
     Active Substance: POMALIDOMIDE
     Indication: Plasma cell myeloma refractory
     Dosage: 4 MILLIGRAM, QD
     Dates: start: 20240605, end: 20240619
  11. POMALIDOMIDE [Suspect]
     Active Substance: POMALIDOMIDE
     Dosage: 4 MILLIGRAM, QD
     Dates: start: 20240703, end: 20240723
  12. POMALIDOMIDE [Suspect]
     Active Substance: POMALIDOMIDE
     Dosage: 4 MILLIGRAM, QD
     Dates: start: 20240802, end: 20240822
  13. POMALIDOMIDE [Suspect]
     Active Substance: POMALIDOMIDE
     Dosage: 4 MILLIGRAM, QD
     Dates: start: 20240830, end: 20240919
  14. POMALIDOMIDE [Suspect]
     Active Substance: POMALIDOMIDE
     Dosage: 4 MILLIGRAM, QD
     Dates: start: 20240927, end: 20241018
  15. POMALIDOMIDE [Suspect]
     Active Substance: POMALIDOMIDE
     Dosage: 4 MILLIGRAM, QD
     Dates: start: 20241025, end: 20241108
  16. POMALIDOMIDE [Suspect]
     Active Substance: POMALIDOMIDE
     Dosage: 3 MILLIGRAM, QD
     Dates: start: 20241129, end: 20241220
  17. POMALIDOMIDE [Suspect]
     Active Substance: POMALIDOMIDE
     Dosage: 3 MILLIGRAM, QD
     Dates: start: 20241227, end: 20250117
  18. ISATUXIMAB [Suspect]
     Active Substance: ISATUXIMAB
     Indication: Plasma cell myeloma refractory
     Dosage: 565 MILLIGRAM, QW
     Dates: start: 20240605, end: 20240612
  19. ISATUXIMAB [Suspect]
     Active Substance: ISATUXIMAB
     Dosage: 560 MILLIGRAM, QW
     Dates: start: 20240626, end: 20240626
  20. ISATUXIMAB [Suspect]
     Active Substance: ISATUXIMAB
     Dosage: 560 MILLIGRAM, BIWEEKLY
     Dates: start: 20240703, end: 20240719
  21. ISATUXIMAB [Suspect]
     Active Substance: ISATUXIMAB
     Dosage: 560 MILLIGRAM, BIWEEKLY
     Dates: start: 20240802, end: 20240816
  22. ISATUXIMAB [Suspect]
     Active Substance: ISATUXIMAB
     Dosage: 570 MILLIGRAM, BIWEEKLY
     Dates: start: 20240830, end: 20240913
  23. ISATUXIMAB [Suspect]
     Active Substance: ISATUXIMAB
     Dosage: 570 MILLIGRAM, BIWEEKLY
     Dates: start: 20240927, end: 20240927
  24. ISATUXIMAB [Suspect]
     Active Substance: ISATUXIMAB
     Dosage: 570 MILLIGRAM, BIWEEKLY
     Dates: start: 20241025, end: 20241115
  25. ISATUXIMAB [Suspect]
     Active Substance: ISATUXIMAB
     Dosage: 560 MILLIGRAM, BIWEEKLY
     Dates: start: 20241129, end: 20241213
  26. ISATUXIMAB [Suspect]
     Active Substance: ISATUXIMAB
     Dosage: 560 MILLIGRAM, BIWEEKLY
     Dates: start: 20241227, end: 20250110
  27. ACETAMINOPHEN [Concomitant]
     Active Substance: ACETAMINOPHEN
     Indication: Premedication
     Dosage: EVERY CYCLE
     Dates: start: 20240605
  28. DEXCHLORPHENIRAMINE [Concomitant]
     Active Substance: DEXCHLORPHENIRAMINE
     Indication: Premedication
     Dosage: EVERY CYCLE
     Dates: start: 20240605
  29. CHOLECALCIFEROL [Concomitant]
     Active Substance: CHOLECALCIFEROL
     Indication: Prophylaxis
     Dosage: UNK
  30. BACTRIM [Concomitant]
     Active Substance: SULFAMETHOXAZOLE\TRIMETHOPRIM
     Indication: Infection prophylaxis
     Dosage: UNK
  31. VALACYCLOVIR HYDROCHLORIDE [Concomitant]
     Active Substance: VALACYCLOVIR HYDROCHLORIDE
     Indication: Antiviral prophylaxis
     Dosage: UNK
  32. ELIQUIS [Concomitant]
     Active Substance: APIXABAN
     Indication: Thrombosis prophylaxis
     Dosage: UNK
  33. INDAPAMIDE [Concomitant]
     Active Substance: INDAPAMIDE
     Dosage: UNK
  34. PERINDOPRIL [Concomitant]
     Active Substance: PERINDOPRIL
     Dosage: UNK
  35. TRIMEBUTINE MALEATE [Concomitant]
     Active Substance: TRIMEBUTINE MALEATE
     Dosage: UNK

REACTIONS (2)
  - Neutropenia [Recovered/Resolved]
  - Hypokalaemia [Recovered/Resolved]

NARRATIVE: CASE EVENT DATE: 20241106
